FAERS Safety Report 5731272-9 (Version None)
Quarter: 2008Q2

REPORT INFORMATION
  Report Type: 
  Country: None (occurrence: None)
  Receive Date: 20080505
  Receipt Date: 20080424
  Transmission Date: 20081010
  Serious: Yes (Congenital Anomaly, Other)
  Sender: FDA-Public Use
  Company Number: GXKR2008GB03946

PATIENT
  Sex: Male

DRUGS (2)
  1. SERTRALINE [Suspect]
     Dosage: TRANSPLACENTAL
     Route: 064
  2. VENLAFAXINE HCL [Suspect]
     Dosage: TRANSPLACENTAL
     Route: 064

REACTIONS (9)
  - ABNORMAL PALMAR/PLANTAR CREASES [None]
  - CAESAREAN SECTION [None]
  - DRUG EXPOSURE DURING PREGNANCY [None]
  - EAR MALFORMATION [None]
  - FOETAL DAMAGE [None]
  - HEAD DEFORMITY [None]
  - MATERNAL DRUGS AFFECTING FOETUS [None]
  - POLYHYDRAMNIOS [None]
  - UNSTABLE FOETAL LIE [None]
